FAERS Safety Report 18940436 (Version 1)
Quarter: 2021Q1

REPORT INFORMATION
  Report Type: Spontaneous
  Country: US (occurrence: US)
  Receive Date: 20210225
  Receipt Date: 20210225
  Transmission Date: 20210420
  Serious: Yes (Death, Hospitalization, Other)
  Sender: FDA-Public Use
  Company Number: US-B.I. PHARMACEUTICALS,INC./RIDGEFIELD-2021-BI-085084

PATIENT
  Sex: Female

DRUGS (1)
  1. GLYXAMBI [Suspect]
     Active Substance: EMPAGLIFLOZIN\LINAGLIPTIN
     Indication: DIABETES MELLITUS
     Route: 065
     Dates: start: 201811

REACTIONS (4)
  - Multiple organ dysfunction syndrome [Fatal]
  - Fournier^s gangrene [Fatal]
  - Respiratory failure [Fatal]
  - Septic shock [Unknown]

NARRATIVE: CASE EVENT DATE: 20181108
